FAERS Safety Report 8623729-8 (Version None)
Quarter: 2012Q3

REPORT INFORMATION
  Report Type: 
  Country: None (occurrence: None)
  Receive Date: 20120827
  Receipt Date: 20120813
  Transmission Date: 20120928
  Serious: Yes (Other)
  Sender: FDA-Public Use
  Company Number: US-ASTRAZENECA-2012SE47953

PATIENT
  Age: 76 Year
  Sex: Male
  Weight: 133.4 kg

DRUGS (19)
  1. VITAMIN [Concomitant]
  2. PREVACID [Concomitant]
     Dosage: QD-BID
  3. PRILOSEC [Concomitant]
     Dosage: QD-BID
  4. AMARYL [Concomitant]
  5. PROAIR HFA [Concomitant]
     Dosage: 90 MCG
  6. ACTUATION HFA [Concomitant]
     Dosage: TWO PUFFS UP TO FOUR TIMES A DAY AS NEEDED
  7. SYMBICORT [Suspect]
     Indication: PULMONARY HYPERTENSION
     Dosage: 80/ 4.5 UNKNOWN
     Route: 055
  8. COMBIVENT [Concomitant]
     Dosage: PRN
  9. SYMBICORT [Suspect]
     Dosage: 160/4.5 TWO PUFFS BID
     Route: 055
  10. SYMBICORT [Suspect]
     Dosage: 160/4.5 TWO PUFFS BID
     Route: 055
  11. CARVEDILOL [Concomitant]
  12. ASPIRIN [Concomitant]
  13. LASIX [Concomitant]
  14. PLAVIX [Concomitant]
  15. ISOSORBIDE [Concomitant]
  16. GLUCOSAMINE CHONDROITIN [Concomitant]
  17. SYMBICORT [Suspect]
     Indication: COUGH
     Dosage: 80/ 4.5 UNKNOWN
     Route: 055
  18. BENICAR [Concomitant]
  19. SIMVASTATIN [Concomitant]

REACTIONS (29)
  - GASTROOESOPHAGEAL REFLUX DISEASE [None]
  - ARTHRALGIA [None]
  - DIABETES MELLITUS [None]
  - CHEST PAIN [None]
  - HYPERTENSION [None]
  - NASAL CONGESTION [None]
  - GINGIVAL DISORDER [None]
  - TOOTH DISORDER [None]
  - NOCTURNAL DYSPNOEA [None]
  - PULMONARY HYPERTENSION [None]
  - OROPHARYNGEAL PAIN [None]
  - HEART RATE IRREGULAR [None]
  - ARTHRITIS [None]
  - HYPERLIPIDAEMIA [None]
  - NOCTURIA [None]
  - LEFT VENTRICULAR FAILURE [None]
  - CARDIOMYOPATHY [None]
  - SLEEP APNOEA SYNDROME [None]
  - DYSPNOEA [None]
  - ESSENTIAL HYPERTENSION [None]
  - HEADACHE [None]
  - WEIGHT INCREASED [None]
  - HYPOAESTHESIA [None]
  - ASTHMA [None]
  - APHONIA [None]
  - RENAL FAILURE [None]
  - CELLULITIS [None]
  - ATRIAL FIBRILLATION [None]
  - OFF LABEL USE [None]
